FAERS Safety Report 25574270 (Version 1)
Quarter: 2025Q3

REPORT INFORMATION
  Report Type: Report from Study
  Country: ZA (occurrence: ZA)
  Receive Date: 20250717
  Receipt Date: 20250717
  Transmission Date: 20251021
  Serious: Yes (Death)
  Sender: ABBVIE
  Company Number: ZA-ABBVIE-6374284

PATIENT
  Sex: Female

DRUGS (2)
  1. OZURDEX [Suspect]
     Active Substance: DEXAMETHASONE
     Indication: Diabetic retinal oedema
     Route: 050
     Dates: start: 20240724
  2. OZURDEX [Suspect]
     Active Substance: DEXAMETHASONE
     Indication: Type 2 diabetes mellitus

REACTIONS (1)
  - Death [Fatal]
